FAERS Safety Report 8919987 (Version 1)
Quarter: 2012Q4

REPORT INFORMATION
  Report Type: 
  Country: IN (occurrence: IN)
  Receive Date: 20121121
  Receipt Date: 20121121
  Transmission Date: 20130627
  Serious: Yes (Death, Life-Threatening)
  Sender: FDA-Public Use
  Company Number: IN-CUBIST-2012S1000919

PATIENT
  Age: 30 Year
  Sex: Male

DRUGS (3)
  1. CUBICIN [Suspect]
     Indication: STAPHYLOCOCCAL SEPSIS
     Route: 042
     Dates: start: 20121008
  2. MEROPENEM [Concomitant]
     Indication: PRODUCT USED FOR UNKNOWN INDICATION
  3. FLUCONAZOLE [Concomitant]
     Indication: PRODUCT USED FOR UNKNOWN INDICATION

REACTIONS (4)
  - Rhabdomyolysis [Fatal]
  - Road traffic accident [Not Recovered/Not Resolved]
  - Sepsis [Not Recovered/Not Resolved]
  - Multi-organ failure [Not Recovered/Not Resolved]
